FAERS Safety Report 4631203-9 (Version None)
Quarter: 2005Q2

REPORT INFORMATION
  Report Type: 
  Country: None (occurrence: None)
  Receive Date: 20050406
  Receipt Date: 20050321
  Transmission Date: 20051028
  Serious: Yes (Hospitalization)
  Sender: FDA-Public Use
  Company Number: USA050392247

PATIENT
  Age: 49 Year
  Sex: Female
  Weight: 77 kg

DRUGS (3)
  1. GEMZAR [Suspect]
     Indication: BREAST CANCER RECURRENT
     Dosage: 1250 MG/M2
     Dates: start: 20050201
  2. TAXOL [Concomitant]
  3. XELODA [Concomitant]

REACTIONS (3)
  - CONDITION AGGRAVATED [None]
  - DERMATITIS EXFOLIATIVE [None]
  - PALMAR-PLANTAR ERYTHRODYSAESTHESIA SYNDROME [None]
